FAERS Safety Report 7536280-3 (Version None)
Quarter: 2011Q2

REPORT INFORMATION
  Report Type: 
  Country: None (occurrence: None)
  Receive Date: 20110609
  Receipt Date: 20110531
  Transmission Date: 20111010
  Serious: Yes (Other)
  Sender: FDA-Public Use
  Company Number: BR-ASTRAZENECA-2011SE34071

PATIENT
  Age: 33 Year
  Sex: Female
  Weight: 56 kg

DRUGS (3)
  1. NASONEX [Concomitant]
     Dates: start: 20101201
  2. ALLEGRA [Concomitant]
     Dates: start: 20101001
  3. SYMBICORT [Suspect]
     Indication: ASTHMA
     Dosage: 320/9 MCG BID
     Route: 055
     Dates: start: 20110201

REACTIONS (5)
  - COUGH [None]
  - PAIN [None]
  - THROAT IRRITATION [None]
  - DYSPNOEA [None]
  - GASTROOESOPHAGEAL REFLUX DISEASE [None]
